FAERS Safety Report 13006507 (Version 2)
Quarter: 2017Q1

REPORT INFORMATION
  Report Type: Spontaneous
  Country: CH (occurrence: CH)
  Receive Date: 20161207
  Receipt Date: 20170105
  Transmission Date: 20170428
  Serious: Yes (Other)
  Sender: FDA-Public Use
  Company Number: CH-TEVA-715689ISR

PATIENT
  Age: 56 Year
  Sex: Female
  Weight: 67 kg

DRUGS (4)
  1. SPIRICORT [Suspect]
     Active Substance: PREDNISOLONE
     Dosage: 10 MG
     Route: 048
  2. HUMIRA [Concomitant]
     Active Substance: ADALIMUMAB
     Route: 058
     Dates: end: 20160902
  3. SPIRICORT [Suspect]
     Active Substance: PREDNISOLONE
     Dosage: 5MG
     Route: 048
     Dates: start: 201611
  4. LEFLUNOMID MEPHA [Suspect]
     Active Substance: LEFLUNOMIDE
     Dosage: 20 MILLIGRAM DAILY;
     Route: 048
     Dates: start: 20150501, end: 20161012

REACTIONS (3)
  - Hypertension [Recovered/Resolved]
  - Tremor [Recovered/Resolved]
  - Tinnitus [Recovered/Resolved]

NARRATIVE: CASE EVENT DATE: 20160902
